FAERS Safety Report 14221582 (Version 2)
Quarter: 2018Q1

REPORT INFORMATION
  Report Type: Report from Study
  Country: AR (occurrence: AR)
  Receive Date: 20171124
  Receipt Date: 20180226
  Transmission Date: 20180508
  Serious: Yes (Hospitalization, Other)
  Sender: FDA-Public Use
  Company Number: AR-BRISTOL-MYERS SQUIBB COMPANY-BMS-2017-105004

PATIENT
  Age: 21 Year
  Sex: Female

DRUGS (1)
  1. NIVOLUMAB [Suspect]
     Active Substance: NIVOLUMAB
     Indication: HODGKIN^S DISEASE
     Dosage: 150 MG, Q2WK
     Route: 042
     Dates: start: 20170220, end: 20171117

REACTIONS (4)
  - Drug ineffective [Unknown]
  - Herpes virus infection [Unknown]
  - Weight decreased [Unknown]
  - Varicella [Unknown]

NARRATIVE: CASE EVENT DATE: 20171117
